FAERS Safety Report 9708751 (Version 1)
Quarter: 2013Q4

REPORT INFORMATION
  Report Type: Spontaneous
  Country: JP (occurrence: JP)
  Receive Date: 20131125
  Receipt Date: 20131125
  Transmission Date: 20140711
  Serious: Yes (Other)
  Sender: FDA-Public Use
  Company Number: JP-GLAXOSMITHKLINE-B0944106A

PATIENT
  Sex: Female

DRUGS (2)
  1. PAXIL [Suspect]
     Indication: PRODUCT USED FOR UNKNOWN INDICATION
     Dosage: 40MG PER DAY
     Route: 048
     Dates: start: 2006
  2. PAXIL [Suspect]
     Indication: PRODUCT USED FOR UNKNOWN INDICATION
     Route: 048
     Dates: end: 201301

REACTIONS (7)
  - Abasia [Unknown]
  - Dizziness [Unknown]
  - Photosensitivity reaction [Unknown]
  - Hyperacusis [Unknown]
  - Gingivitis [Unknown]
  - Tooth disorder [Unknown]
  - Anxiety [Unknown]
